FAERS Safety Report 23213473 (Version 1)
Quarter: 2023Q4

REPORT INFORMATION
  Report Type: Spontaneous
  Country: US (occurrence: None)
  Receive Date: 20231121
  Receipt Date: 20231121
  Transmission Date: 20240109
  Serious: Yes (Other)
  Sender: FDA-Public Use
  Company Number: None

PATIENT

DRUGS (16)
  1. SYFOVRE [Suspect]
     Active Substance: PEGCETACOPLAN
     Indication: Product used for unknown indication
     Dates: start: 20230613
  2. REFRESH REDNESS RELIEF [Suspect]
     Active Substance: PHENYLEPHRINE HYDROCHLORIDE\POLYVINYL ALCOHOL
  3. PATADAY [Suspect]
     Active Substance: OLOPATADINE HYDROCHLORIDE
  4. Telmisartan (HBP) [Concomitant]
  5. METOPROLOL SUCCINATE [Concomitant]
     Active Substance: METOPROLOL SUCCINATE
  6. AMLODIPINE BESYLATE [Concomitant]
     Active Substance: AMLODIPINE BESYLATE
  7. VITAMIN D3 [Concomitant]
     Active Substance: CHOLECALCIFEROL
  8. Areds 2 Preservision Supplements for AMD [Concomitant]
  9. LORAZEPAM [Concomitant]
     Active Substance: LORAZEPAM
  10. FAMOTIDINE [Concomitant]
     Active Substance: FAMOTIDINE
  11. TYLENOL [Concomitant]
     Active Substance: ACETAMINOPHEN
  12. NYSTATIN [Suspect]
     Active Substance: NYSTATIN
  13. CALCIUM CARBONATE\CHOLECALCIFEROL [Concomitant]
     Active Substance: CALCIUM CARBONATE\CHOLECALCIFEROL
  14. Levothyroxine (Thyroid) [Concomitant]
  15. ELIQUIS [Concomitant]
     Active Substance: APIXABAN
  16. Humalog and Lantis [Concomitant]

REACTIONS (4)
  - Blindness [None]
  - Vitreous floaters [None]
  - Dyschromatopsia [None]
  - Altered visual depth perception [None]

NARRATIVE: CASE EVENT DATE: 20230613
